FAERS Safety Report 7523442-4 (Version None)
Quarter: 2011Q2

REPORT INFORMATION
  Report Type: 
  Country: None (occurrence: None)
  Receive Date: 20110603
  Receipt Date: 20110530
  Transmission Date: 20111010
  Serious: No
  Sender: FDA-Public Use
  Company Number: US-TEVA-284425USA

PATIENT
  Sex: Female
  Weight: 65.83 kg

DRUGS (5)
  1. LORATADINE [Concomitant]
     Indication: HYPERSENSITIVITY
     Dates: start: 20101001
  2. CITALOPRAM HYDROBROMIDE [Concomitant]
     Indication: ANXIETY
     Dates: start: 20100101
  3. PLAN B ONE-STEP [Suspect]
     Indication: POST COITAL CONTRACEPTION
     Dosage: 1.5 MILLIGRAM;
     Route: 048
     Dates: start: 20110525, end: 20110525
  4. PRILOSEC [Concomitant]
     Indication: GASTROINTESTINAL DISORDER
  5. RITALIN [Concomitant]
     Indication: ATTENTION DEFICIT/HYPERACTIVITY DISORDER
     Dates: start: 20110101

REACTIONS (1)
  - MENSTRUATION IRREGULAR [None]
